FAERS Safety Report 9505218 (Version 1)
Quarter: 2013Q1

REPORT INFORMATION
  Report Type: Spontaneous
  Country: US (occurrence: None)
  Receive Date: 20130225
  Receipt Date: 20130225
  Transmission Date: 20140127
  Serious: Yes (Hospitalization, Other)
  Sender: FDA-Public Use
  Company Number: 364318

PATIENT
  Age: 55 Year
  Sex: Female
  Weight: 89.5 kg

DRUGS (4)
  1. VICTOZA (LIRAGLUTIDE) SOLUTION FOR INJECTION, 6MG/ML [Suspect]
     Indication: TYPE 2 DIABETES MELLITUS
     Route: 058
     Dates: start: 20121024, end: 201211
  2. METFORMIN (METFORMIN) [Concomitant]
  3. LOSARTAN (LOSARTAN) [Concomitant]
  4. PRAVASTATIN (PRAVASTATIN) [Concomitant]

REACTIONS (1)
  - Pancreatitis [None]
